FAERS Safety Report 4462724-X (Version None)
Quarter: 2004Q3

REPORT INFORMATION
  Report Type: 
  Country: None (occurrence: None)
  Receive Date: 20040927
  Receipt Date: 20040910
  Transmission Date: 20050211
  Serious: Yes (Hospitalization)
  Sender: FDA-Public Use
  Company Number: SUSI-2004-00463

PATIENT
  Age: 28 Year
  Sex: Male
  Weight: 83.9 kg

DRUGS (4)
  1. ADDERALL XR(AMPHETAMINE ASPARTATE, AMPHETATMINE SULFATE, DEXTROAMPHETA [Suspect]
     Dosage: 30 MG, 1X/DAY:QD, UNK
     Dates: start: 20040701
  2. ADDERALL 30 [Suspect]
     Dosage: 10 + 30MG, 2X/DAY;BID, UNK
     Dates: start: 19940101, end: 19970101
  3. ADDERALL 30 [Suspect]
     Dosage: 10 + 30MG, 2X/DAY;BID, UNK
  4. PAXIL [Concomitant]

REACTIONS (7)
  - ASTHENIA [None]
  - CARDIOMYOPATHY [None]
  - DYSPNOEA [None]
  - HYPERTENSION [None]
  - HYPOAESTHESIA [None]
  - MYOCARDIAL INFARCTION [None]
  - PHARMACEUTICAL PRODUCT COMPLAINT [None]
